FAERS Safety Report 10688008 (Version 1)
Quarter: 2014Q4

REPORT INFORMATION
  Report Type: Spontaneous
  Country: US (occurrence: None)
  Receive Date: 20141231
  Receipt Date: 20141231
  Transmission Date: 20150529
  Serious: No
  Sender: FDA-Public Use
  Company Number: None

PATIENT
  Age: 51 Year
  Sex: Female
  Weight: 58.97 kg

DRUGS (1)
  1. EAGLE BRAND MEDICATED OIL [Suspect]
     Active Substance: EUCALYPTUS OIL\MENTHOL\METHYL SALICYLATE
     Indication: MYALGIA
     Route: 061
     Dates: start: 20141201, end: 20141205

REACTIONS (4)
  - Product quality issue [None]
  - Product odour abnormal [None]
  - Suspected counterfeit product [None]
  - Headache [None]

NARRATIVE: CASE EVENT DATE: 20141205
